FAERS Safety Report 5613022-X (Version None)
Quarter: 2008Q1

REPORT INFORMATION
  Report Type: 
  Country: None (occurrence: None)
  Receive Date: 20080204
  Receipt Date: 20080123
  Transmission Date: 20080703
  Serious: Yes (Other)
  Sender: FDA-Public Use
  Company Number: US-PFIZER INC-2008007483

PATIENT
  Sex: Female
  Weight: 63.5 kg

DRUGS (8)
  1. LYRICA [Suspect]
     Indication: FIBROMYALGIA
     Dates: start: 20080116, end: 20080122
  2. EFFEXOR XR [Concomitant]
  3. VISTARIL [Concomitant]
  4. TYLENOL (CAPLET) [Concomitant]
  5. ACTIVELLA [Concomitant]
  6. MULTI-VITAMINS [Concomitant]
  7. KLONOPIN [Concomitant]
     Indication: NERVOUSNESS
  8. ULTRAM [Concomitant]

REACTIONS (3)
  - OEDEMA PERIPHERAL [None]
  - RENAL DISORDER [None]
  - WEIGHT INCREASED [None]
